FAERS Safety Report 9849350 (Version 1)
Quarter: 2014Q1

REPORT INFORMATION
  Report Type: Spontaneous
  Country: DE (occurrence: DE)
  Receive Date: 20140128
  Receipt Date: 20140128
  Transmission Date: 20141002
  Serious: Yes (Other)
  Sender: FDA-Public Use
  Company Number: DE-CTI_01610_2014

PATIENT
  Age: 1 Day
  Sex: Male

DRUGS (4)
  1. CUROSURF [Suspect]
     Indication: NEONATAL RESPIRATORY DISTRESS SYNDROME
     Dosage: DAILY
     Route: 007
     Dates: start: 20130928, end: 20130928
  2. CUROSURF [Suspect]
     Dosage: DAILY
     Route: 007
  3. AMPICILLIN [Concomitant]
     Dosage: DAILY
     Dates: start: 20130927, end: 20131005
  4. TOBRAMYCIN [Concomitant]
     Dosage: DAILY
     Dates: start: 20130927, end: 20131005

REACTIONS (3)
  - Underdose [Recovered/Resolved]
  - Drug ineffective [Recovered/Resolved]
  - Product quality issue [None]
